FAERS Safety Report 15274628 (Version 2)
Quarter: 2018Q3

REPORT INFORMATION
  Report Type: Report from Study
  Country: ZA (occurrence: ZA)
  Receive Date: 20180814
  Receipt Date: 20180905
  Transmission Date: 20181010
  Serious: Yes (Other)
  Sender: FDA-Public Use
  Company Number: ZA-BRISTOL-MYERS SQUIBB COMPANY-BMS-2018-014656

PATIENT
  Age: 48 Year
  Sex: Female

DRUGS (1)
  1. ABATACEPT [Suspect]
     Active Substance: ABATACEPT
     Indication: RHEUMATOID ARTHRITIS
     Dosage: 125 MG, QWK
     Route: 058
     Dates: start: 20170823

REACTIONS (11)
  - Peripheral swelling [Unknown]
  - Ocular hyperaemia [Unknown]
  - Arthritis [Unknown]
  - Pain in extremity [Unknown]
  - Lacrimation increased [Unknown]
  - Nodule [Unknown]
  - Immune system disorder [Unknown]
  - Eye pain [Unknown]
  - Drug dose omission [Unknown]
  - Pain [Unknown]
  - Visual impairment [Unknown]

NARRATIVE: CASE EVENT DATE: 20180208
